FAERS Safety Report 11756573 (Version 7)
Quarter: 2019Q2

REPORT INFORMATION
  Report Type: Report from Study
  Country: CA (occurrence: CA)
  Receive Date: 20151119
  Receipt Date: 20190617
  Transmission Date: 20190711
  Serious: Yes (Other)
  Sender: FDA-Public Use
  Company Number: CA-ROCHE-1642122

PATIENT
  Age: 83 Year
  Sex: Male
  Weight: 71.8 kg

DRUGS (12)
  1. ESBRIET [Suspect]
     Active Substance: PIRFENIDONE
     Route: 048
     Dates: start: 20150929
  2. PRIMIDONE. [Concomitant]
     Active Substance: PRIMIDONE
  3. ESBRIET [Suspect]
     Active Substance: PIRFENIDONE
     Route: 048
     Dates: start: 20151006
  4. ATORVASTATIN [Concomitant]
     Active Substance: ATORVASTATIN
  5. LOSARTAN. [Concomitant]
     Active Substance: LOSARTAN
  6. VENTOLIN [Concomitant]
     Active Substance: ALBUTEROL SULFATE
  7. ADVAIR HFA [Concomitant]
     Active Substance: FLUTICASONE PROPIONATE\SALMETEROL XINAFOATE
     Route: 065
  8. FLOVENT [Concomitant]
     Active Substance: FLUTICASONE PROPIONATE
  9. ESBRIET [Suspect]
     Active Substance: PIRFENIDONE
     Indication: IDIOPATHIC PULMONARY FIBROSIS
     Route: 048
     Dates: start: 20150922
  10. PROPRANOLOL [Concomitant]
     Active Substance: PROPRANOLOL HYDROCHLORIDE
  11. ACETYLSALICYLIC ACID [Concomitant]
     Active Substance: ASPIRIN
  12. TECTA [Concomitant]
     Active Substance: PANTOPRAZOLE MAGNESIUM

REACTIONS (12)
  - Hypoaesthesia [Not Recovered/Not Resolved]
  - Dyspnoea [Unknown]
  - Erythema [Unknown]
  - Dry skin [Unknown]
  - Fatigue [Not Recovered/Not Resolved]
  - Pruritus [Recovering/Resolving]
  - Skin reaction [Recovered/Resolved]
  - Mass [Not Recovered/Not Resolved]
  - Insomnia [Unknown]
  - Pulmonary function test decreased [Unknown]
  - Muscle fatigue [Unknown]
  - Cough [Unknown]

NARRATIVE: CASE EVENT DATE: 20150925
